FAERS Safety Report 15695246 (Version 1)
Quarter: 2018Q4

REPORT INFORMATION
  Report Type: Spontaneous
  Country: US (occurrence: US)
  Receive Date: 20181206
  Receipt Date: 20181206
  Transmission Date: 20190205
  Serious: No
  Sender: FDA-Public Use
  Company Number: US-ENDO PHARMACEUTICALS INC-2018-019479

PATIENT
  Age: 58 Year
  Sex: Male
  Weight: 67.12 kg

DRUGS (3)
  1. XIAFLEX [Suspect]
     Active Substance: COLLAGENASE CLOSTRIDIUM HISTOLYTICUM
     Dosage: FIRST CYCLE; ONE INJECTION
     Route: 026
     Dates: start: 20171114
  2. XIAFLEX [Suspect]
     Active Substance: COLLAGENASE CLOSTRIDIUM HISTOLYTICUM
     Indication: PEYRONIE^S DISEASE
     Dosage: SECOND CYCLE, ONE INJECTION
     Route: 026
     Dates: start: 20180213
  3. XIAFLEX [Suspect]
     Active Substance: COLLAGENASE CLOSTRIDIUM HISTOLYTICUM
     Dosage: FIRST CYCLE; ONE INJECTION
     Route: 026
     Dates: start: 20171115

REACTIONS (5)
  - Inappropriate schedule of product administration [Unknown]
  - Penile contusion [Unknown]
  - Penile swelling [Unknown]
  - Penile blister [Unknown]
  - Blood blister [Unknown]

NARRATIVE: CASE EVENT DATE: 201801
